FAERS Safety Report 4361099-4 (Version None)
Quarter: 2004Q2

REPORT INFORMATION
  Report Type: 
  Country: None (occurrence: None)
  Receive Date: 20040520
  Receipt Date: 20030718
  Transmission Date: 20050107
  Serious: Yes (Hospitalization, Other)
  Sender: FDA-Public Use
  Company Number: GB-MERCK-0307GBR00168

PATIENT
  Age: 71 Year
  Sex: Female

DRUGS (18)
  1. ACETAMINOPHEN AND CODEINE PHOSPHATE [Concomitant]
     Route: 065
     Dates: start: 20030301
  2. FOSAMAX [Concomitant]
     Route: 048
     Dates: start: 20030301
  3. ASPIRIN [Concomitant]
     Route: 065
     Dates: start: 20030301
  4. ATENOLOL [Suspect]
     Route: 065
     Dates: start: 20030301, end: 20030101
  5. ATENOLOL [Suspect]
     Route: 065
     Dates: start: 20030101, end: 20030618
  6. CARBOMER [Concomitant]
     Route: 047
     Dates: start: 20030601
  7. FOLIC ACID [Concomitant]
     Route: 065
     Dates: start: 20030601
  8. GABAPENTIN [Concomitant]
     Route: 065
     Dates: start: 20030301
  9. LACTULOSE [Concomitant]
     Route: 065
     Dates: start: 20030301
  10. LANSOPRAZOLE [Concomitant]
     Route: 065
  11. NITRAZEPAM [Concomitant]
     Route: 065
     Dates: start: 20030301
  12. RANITIDINE [Concomitant]
     Route: 065
     Dates: start: 20030601
  13. VIOXX [Suspect]
     Route: 048
     Dates: start: 20030301, end: 20030618
  14. SENNA [Concomitant]
     Route: 065
     Dates: start: 20030301
  15. SIMVASTATIN [Concomitant]
     Route: 065
     Dates: start: 20030609
  16. SULFAMETHOXAZOLE AND TRIMETHOPRIM [Suspect]
     Indication: INFECTION
     Route: 048
     Dates: start: 20030614, end: 20030619
  17. TRIMETHOPRIM [Suspect]
     Indication: URINARY TRACT INFECTION
     Route: 065
     Dates: start: 20030308, end: 20030318
  18. VITAMIN B COMPLEX [Concomitant]
     Route: 065
     Dates: start: 20030301

REACTIONS (8)
  - ASTHENIA [None]
  - BLOOD CREATININE INCREASED [None]
  - BLOOD UREA INCREASED [None]
  - CIRCULATORY COLLAPSE [None]
  - HEART RATE DECREASED [None]
  - HYPERKALAEMIA [None]
  - HYPOTENSION [None]
  - NAUSEA [None]
